FAERS Safety Report 10512411 (Version 2)
Quarter: 2014Q4

REPORT INFORMATION
  Report Type: Spontaneous
  Country: US (occurrence: US)
  Receive Date: 20141010
  Receipt Date: 20141114
  Transmission Date: 20150528
  Serious: Yes (Hospitalization, Other)
  Sender: FDA-Public Use
  Company Number: PHEH2014US020071

PATIENT
  Sex: Female
  Weight: 52 kg

DRUGS (9)
  1. MIACALCIN [Concomitant]
     Active Substance: CALCITONIN SALMON
     Indication: OSTEOPOROSIS
     Dosage: 1 DF, ALTERNATE NARES
     Route: 045
     Dates: start: 20001024
  2. RECLAST [Suspect]
     Active Substance: ZOLEDRONIC ACID
     Indication: OSTEOPOROSIS
     Dosage: 5 MG,YEARLY
     Route: 042
     Dates: start: 20140404
  3. PREMARIN [Concomitant]
     Active Substance: ESTROGENS, CONJUGATED
     Indication: HORMONE REPLACEMENT THERAPY
     Dosage: 0.65 MG, QD
     Route: 048
     Dates: start: 19940928, end: 199510
  4. DEPO ESTRADIOL [Concomitant]
     Indication: HORMONE REPLACEMENT THERAPY
     Dosage: 1 ML, QMO
     Route: 065
     Dates: start: 19950610
  5. HYDROCODONE [Concomitant]
     Active Substance: HYDROCODONE
     Indication: PRODUCT USED FOR UNKNOWN INDICATION
     Route: 065
  6. CALCIUM [Concomitant]
     Active Substance: CALCIUM
     Indication: PRODUCT USED FOR UNKNOWN INDICATION
     Route: 065
  7. PROLIA [Concomitant]
     Active Substance: DENOSUMAB
     Indication: OSTEOPOROSIS
     Dosage: 1 DF, QMO
     Route: 065
     Dates: start: 20110630, end: 20110630
  8. PREMARIN [Concomitant]
     Active Substance: ESTROGENS, CONJUGATED
     Dosage: UNK
     Route: 048
     Dates: start: 20101010
  9. FOSAMAX [Concomitant]
     Active Substance: ALENDRONATE SODIUM
     Indication: OSTEOPOROSIS
     Dosage: 10 MG, QD
     Route: 048
     Dates: start: 20001012

REACTIONS (10)
  - Pain [Unknown]
  - Vomiting [Unknown]
  - Osteonecrosis of jaw [Unknown]
  - Osteitis [Unknown]
  - Headache [Unknown]
  - Influenza like illness [Unknown]
  - Nausea [Unknown]
  - Diarrhoea [Unknown]
  - Pyrexia [Unknown]
  - Bone pain [Unknown]
